FAERS Safety Report 20954138 (Version 1)
Quarter: 2022Q2

REPORT INFORMATION
  Report Type: Spontaneous
  Country: US (occurrence: US)
  Receive Date: 20220614
  Receipt Date: 20220614
  Transmission Date: 20220721
  Serious: No
  Sender: FDA-Public Use
  Company Number: US-LUPIN PHARMACEUTICALS INC.-2022-08522

PATIENT
  Age: 65 Year
  Sex: Female

DRUGS (6)
  1. CETIRIZINE [Suspect]
     Active Substance: CETIRIZINE HYDROCHLORIDE
     Indication: Rash pruritic
     Dosage: UNK
     Route: 065
  2. MOMETASONE [Suspect]
     Active Substance: MOMETASONE
     Indication: Rash pruritic
     Dosage: UNK
     Route: 061
  3. LORATADINE [Suspect]
     Active Substance: LORATADINE
     Indication: Rash pruritic
     Dosage: UNK
     Route: 065
  4. ZOTAROLIMUS [Concomitant]
     Active Substance: ZOTAROLIMUS
     Indication: Coronary artery disease
     Dosage: UNK (TWO ZOTAROLIMUS ELUTING STENTS)
     Route: 065
  5. PREDNISONE [Concomitant]
     Active Substance: PREDNISONE
     Indication: Rash pruritic
     Dosage: UNK
     Route: 065
  6. MEPOLIZUMAB [Concomitant]
     Active Substance: MEPOLIZUMAB
     Indication: Eosinophilia
     Dosage: 300 MILLIGRAM
     Route: 058

REACTIONS (1)
  - Drug ineffective [Unknown]
